FAERS Safety Report 5087669-6 (Version None)
Quarter: 2006Q3

REPORT INFORMATION
  Report Type: 
  Country: None (occurrence: None)
  Receive Date: 20060823
  Receipt Date: 20060823
  Transmission Date: 20061208
  Serious: Yes (Other)
  Sender: FDA-Public Use
  Company Number: None

PATIENT
  Sex: Male
  Weight: 98.8842 kg

DRUGS (4)
  1. KETEK [Suspect]
     Indication: SINUSITIS
     Dosage: 800 MG PO
     Route: 048
     Dates: start: 20051215
  2. KETEK [Suspect]
     Indication: SINUSITIS
     Dosage: 800 MG PO
     Route: 048
     Dates: start: 20051219
  3. ALTACE [Concomitant]
  4. PRAVACHOL [Concomitant]

REACTIONS (5)
  - ANOREXIA [None]
  - HEADACHE [None]
  - LIVER FUNCTION TEST ABNORMAL [None]
  - MYALGIA [None]
  - PYREXIA [None]
